FAERS Safety Report 12424644 (Version 2)
Quarter: 2016Q2

REPORT INFORMATION
  Report Type: Spontaneous
  Country: US (occurrence: US)
  Receive Date: 20160601
  Receipt Date: 20160624
  Transmission Date: 20160815
  Serious: No
  Sender: FDA-Public Use
  Company Number: US-PFIZER INC-2016255909

PATIENT
  Age: 39 Year
  Sex: Male
  Weight: 100 kg

DRUGS (3)
  1. CLOMIPHENE CITRATE. [Concomitant]
     Active Substance: CLOMIPHENE CITRATE
     Indication: BLOOD TESTOSTERONE DECREASED
     Dosage: 25 MG, DAILY
     Route: 048
  2. GENOTROPIN MQ [Suspect]
     Active Substance: SOMATROPIN
     Indication: GROWTH HORMONE DEFICIENCY
     Dosage: 0.2 MG, INJECTION ONCE DAILY
     Route: 058
     Dates: start: 20160420
  3. TIROSINT [Concomitant]
     Active Substance: LEVOTHYROXINE SODIUM
     Indication: THYROID DISORDER
     Dosage: 150 UG, 1 GELCAP BY MOUTH DAILY
     Route: 048

REACTIONS (6)
  - Arthralgia [Recovered/Resolved]
  - Neck pain [Unknown]
  - Joint stiffness [Unknown]
  - Back pain [Recovering/Resolving]
  - Poor quality sleep [Not Recovered/Not Resolved]
  - Feeling abnormal [Unknown]
